FAERS Safety Report 5900211-X (Version None)
Quarter: 2008Q3

REPORT INFORMATION
  Report Type: 
  Country: None (occurrence: None)
  Receive Date: 20080926
  Receipt Date: 20080916
  Transmission Date: 20090109
  Serious: Yes (Hospitalization, Other)
  Sender: FDA-Public Use
  Company Number: US-JNJFOC-20080606532

PATIENT
  Sex: Female
  Weight: 81.65 kg

DRUGS (15)
  1. FENTANYL TRANSDERMAL SYSTEM [Suspect]
     Indication: ARTHRALGIA
     Route: 062
  2. TOPROL-XL [Concomitant]
     Indication: CARDIAC DISORDER
     Route: 048
  3. LASIX [Concomitant]
     Indication: DIURETIC THERAPY
     Route: 048
  4. LISINOPRIL [Concomitant]
     Indication: BLOOD PRESSURE
     Route: 048
  5. GABAPENTIN [Concomitant]
     Indication: NEURALGIA
     Route: 048
  6. OXYCODONE HCL [Concomitant]
     Indication: BREAKTHROUGH PAIN
     Dosage: UP TO 4 TIMES DAILY AS NEEDED
     Route: 048
  7. ZETIA [Concomitant]
  8. GABAPENTIN [Concomitant]
  9. MIRAPEX [Concomitant]
  10. OXYCODONE HCL [Concomitant]
     Dosage: AS NECESSARY
  11. FUROSEMIDE [Concomitant]
  12. PREVACID [Concomitant]
  13. ZOLPIDEM TARTRATE [Concomitant]
     Dosage: AS NEEDED
  14. FENTANYL TRANSDERMAL SYSTEM [Concomitant]
     Route: 062
  15. FENTANYL TRANSDERMAL SYSTEM [Concomitant]
     Route: 062

REACTIONS (10)
  - APPLICATION SITE RASH [None]
  - APPLICATION SITE VESICLES [None]
  - ARTHROPATHY [None]
  - BURSITIS [None]
  - HYPERHIDROSIS [None]
  - INAPPROPRIATE SCHEDULE OF DRUG ADMINISTRATION [None]
  - NAUSEA [None]
  - PHARMACEUTICAL PRODUCT COMPLAINT [None]
  - STAPHYLOCOCCAL INFECTION [None]
  - WRONG TECHNIQUE IN DRUG USAGE PROCESS [None]
